FAERS Safety Report 7259663-8 (Version None)
Quarter: 2011Q1

REPORT INFORMATION
  Report Type: 
  Country: None (occurrence: None)
  Receive Date: 20110130
  Receipt Date: 20100910
  Transmission Date: 20110831
  Serious: No
  Sender: FDA-Public Use
  Company Number: US-ABBOTT-10P-163-0648719-00

PATIENT
  Age: 35 Year
  Sex: Female

DRUGS (4)
  1. PRISTIG [Concomitant]
     Indication: PRODUCT USED FOR UNKNOWN INDICATION
  2. SOLODYN [Concomitant]
     Indication: PRODUCT USED FOR UNKNOWN INDICATION
  3. HUMIRA [Suspect]
     Indication: PSORIASIS
     Dates: start: 20100519
  4. IBUPROFEN [Concomitant]
     Indication: PRODUCT USED FOR UNKNOWN INDICATION
     Dosage: 800MG TWICE DAILY AS REQUIRED

REACTIONS (4)
  - ARTHRALGIA [None]
  - DEVICE MALFUNCTION [None]
  - FLUSHING [None]
  - DRUG DOSE OMISSION [None]
